FAERS Safety Report 8766797 (Version 1)
Quarter: 2012Q4

REPORT INFORMATION
  Report Type: 
  Country: US (occurrence: US)
  Receive Date: 20120904
  Receipt Date: 20120904
  Transmission Date: 20130627
  Serious: Yes (Other)
  Sender: FDA-Public Use
  Company Number: US-BAYER-2012-089117

PATIENT
  Age: 55 Year
  Sex: Male

DRUGS (1)
  1. SORAFENIB [Suspect]
     Indication: LUNG NEOPLASM MALIGNANT
     Dosage: 400 mg, BID
     Dates: start: 20120807, end: 20120826

REACTIONS (7)
  - Abasia [None]
  - Pain [None]
  - Blister [Not Recovered/Not Resolved]
  - Pain in extremity [None]
  - Oedema peripheral [None]
  - Genital rash [Not Recovered/Not Resolved]
  - Pruritus [Unknown]
